FAERS Safety Report 9832889 (Version 2)
Quarter: 2014Q1

REPORT INFORMATION
  Report Type: Spontaneous
  Country: US (occurrence: US)
  Receive Date: 20140121
  Receipt Date: 20140303
  Transmission Date: 20141002
  Serious: Yes (Hospitalization)
  Sender: FDA-Public Use
  Company Number: US-PFIZER INC-2014012949

PATIENT
  Age: 59 Year
  Sex: Female

DRUGS (11)
  1. SOMAVERT [Suspect]
     Indication: ACROMEGALY
     Dosage: 20 MG, DAILY
     Route: 058
  2. SOMAVERT [Suspect]
     Indication: GIGANTISM
  3. CRANBERRY CONCENTRATE [Concomitant]
     Dosage: UNK
  4. ECOTRIN [Concomitant]
     Dosage: 81 MG, UNK
  5. FLAXSEED OIL [Concomitant]
     Dosage: UNK
  6. KRILL OIL [Concomitant]
     Dosage: UNK
  7. OMEPRAZOLE [Concomitant]
     Dosage: 20 MG, UNK
  8. VITAMIN D [Concomitant]
     Dosage: UNK
  9. EXEMESTANE [Concomitant]
     Dosage: 25 MG, UNK
  10. HYDROCORTISONE [Concomitant]
     Dosage: 10 MG, UNK
  11. SYNTHROID [Concomitant]
     Dosage: 125 UG, UNK

REACTIONS (2)
  - Arthritis [Recovered/Resolved]
  - Arthralgia [Unknown]
